FAERS Safety Report 7445280-3 (Version None)
Quarter: 2011Q2

REPORT INFORMATION
  Report Type: 
  Country: None (occurrence: None)
  Receive Date: 20110429
  Receipt Date: 20110428
  Transmission Date: 20111010
  Serious: Yes (Hospitalization)
  Sender: FDA-Public Use
  Company Number: JP-SANOFI-AVENTIS-2011SA020527

PATIENT
  Age: 63 Year
  Sex: Male
  Weight: 56 kg

DRUGS (9)
  1. LANDSEN [Concomitant]
     Indication: DEPRESSION
     Route: 048
  2. PARIET [Concomitant]
     Indication: REFLUX OESOPHAGITIS
     Route: 048
  3. ALL OTHER THERAPEUTIC PRODUCTS [Concomitant]
     Route: 048
  4. TAXOTERE [Suspect]
     Dosage: 20MG/M2
     Route: 041
     Dates: start: 20110401, end: 20110401
  5. FLUVOXAMINE MALEATE [Concomitant]
     Indication: DEPRESSION
     Route: 048
  6. MACMET [Concomitant]
     Indication: OESOPHAGEAL CARCINOMA
     Route: 048
     Dates: start: 20100801
  7. TAXOTERE [Suspect]
     Indication: OESOPHAGEAL CARCINOMA
     Dosage: 20MG/M2
     Route: 041
     Dates: start: 20110318, end: 20110318
  8. CORINAEL [Concomitant]
     Indication: HYPERTENSION
     Route: 048
  9. ETISEDAN [Suspect]
     Indication: DEPRESSION
     Route: 048

REACTIONS (1)
  - RHABDOMYOLYSIS [None]
